FAERS Safety Report 24647468 (Version 1)
Quarter: 2024Q4

REPORT INFORMATION
  Report Type: Spontaneous
  Country: US (occurrence: None)
  Receive Date: 20241120
  Receipt Date: 20241120
  Transmission Date: 20250115
  Serious: No
  Sender: Public
  Company Number: None

PATIENT
  Sex: 0

DRUGS (3)
  1. PHENYTOIN [Suspect]
     Active Substance: PHENYTOIN
  2. LAMOTRIGINE [Suspect]
     Active Substance: LAMOTRIGINE
  3. NAPROXEN [Suspect]
     Active Substance: NAPROXEN

REACTIONS (1)
  - Drug hypersensitivity [None]
